FAERS Safety Report 9959256 (Version 1)
Quarter: 2014Q1

REPORT INFORMATION
  Report Type: Report from Study
  Country: US (occurrence: US)
  Receive Date: 20140305
  Receipt Date: 20140305
  Transmission Date: 20141002
  Serious: No
  Sender: FDA-Public Use
  Company Number: US-ABBVIE-13P-163-1102347-00

PATIENT
  Age: 45 Year
  Sex: Male

DRUGS (3)
  1. HUMIRA [Suspect]
     Indication: PSORIATIC ARTHROPATHY
     Dates: start: 201301
  2. CYMBALTA [Suspect]
     Indication: PRODUCT USED FOR UNKNOWN INDICATION
  3. BC HEADACHE [Concomitant]
     Indication: PAIN
     Dosage: (1000 MG ASA AND 65 MG CAFFEINE)

REACTIONS (18)
  - Pain [Not Recovered/Not Resolved]
  - Onychalgia [Unknown]
  - Gait disturbance [Unknown]
  - Road traffic accident [Unknown]
  - Neck pain [Unknown]
  - Back pain [Unknown]
  - Anger [Unknown]
  - Fibromyalgia [Unknown]
  - Muscle twitching [Unknown]
  - Arthralgia [Unknown]
  - Arthralgia [Unknown]
  - Hypoaesthesia [Unknown]
  - Pharyngitis streptococcal [Unknown]
  - Ear infection [Unknown]
  - Psoriasis [Unknown]
  - Psoriasis [Unknown]
  - Drug ineffective [Unknown]
  - Sinusitis [Unknown]
